FAERS Safety Report 21879640 (Version 1)
Quarter: 2023Q1

REPORT INFORMATION
  Report Type: Spontaneous
  Country: IE (occurrence: IE)
  Receive Date: 20230118
  Receipt Date: 20230118
  Transmission Date: 20230418
  Serious: Yes (Other)
  Sender: FDA-Public Use
  Company Number: None

PATIENT
  Sex: Male

DRUGS (1)
  1. DYMISTA [Suspect]
     Active Substance: AZELASTINE HYDROCHLORIDE\FLUTICASONE PROPIONATE
     Indication: Nasal congestion
     Dosage: ONE SPRAY TWICE DAILY, ONE DOSE USED ONLY
     Route: 045

REACTIONS (5)
  - Sudden onset of sleep [Recovered/Resolved]
  - Coordination abnormal [Recovered/Resolved]
  - Confusional state [Recovered/Resolved]
  - Dizziness [Recovered/Resolved]
  - Incoherent [Recovered/Resolved]
